FAERS Safety Report 4379581-2 (Version None)
Quarter: 2004Q2

REPORT INFORMATION
  Report Type: 
  Country: None (occurrence: None)
  Receive Date: 20040415
  Receipt Date: 20040318
  Transmission Date: 20050107
  Serious: No
  Sender: FDA-Public Use
  Company Number: 2004-03-1428

PATIENT
  Sex: Female

DRUGS (1)
  1. CLARINEX [Suspect]
     Indication: HYPERSENSITIVITY
     Dosage: 1 QD ORAL
     Route: 048

REACTIONS (4)
  - BRONCHITIS [None]
  - CHEST PAIN [None]
  - LARYNGITIS [None]
  - OVERDOSE [None]
